FAERS Safety Report 10356217 (Version 4)
Quarter: 2016Q1

REPORT INFORMATION
  Report Type: Report from Study
  Country: US (occurrence: US)
  Receive Date: 20140801
  Receipt Date: 20160226
  Transmission Date: 20160525
  Serious: Yes (Hospitalization, Other)
  Sender: FDA-Public Use
  Company Number: US-AMGEN INC.-USASP2014057682

PATIENT
  Age: 64 Year
  Sex: Female

DRUGS (2)
  1. ENBREL [Suspect]
     Active Substance: ETANERCEPT
     Indication: PSORIATIC ARTHROPATHY
     Dosage: 50 MG, QWK
     Route: 065
     Dates: start: 20031001, end: 201509
  2. METHOTREXATE [Suspect]
     Active Substance: METHOTREXATE
     Indication: PRODUCT USED FOR UNKNOWN INDICATION
     Dosage: UNK
     Route: 065

REACTIONS (14)
  - Onychomadesis [Unknown]
  - Onychalgia [Not Recovered/Not Resolved]
  - Osteoporosis [Unknown]
  - Knee arthroplasty [Unknown]
  - Intervertebral disc protrusion [Recovered/Resolved]
  - Nail infection [Unknown]
  - Speech disorder [Not Recovered/Not Resolved]
  - Insomnia [Unknown]
  - Complication associated with device [Unknown]
  - Mobility decreased [Unknown]
  - Fibromyalgia [Unknown]
  - Malaise [Unknown]
  - Arthralgia [Unknown]
  - Spinal fracture [Unknown]

NARRATIVE: CASE EVENT DATE: 200906
